FAERS Safety Report 8882006 (Version 1)
Quarter: 2012Q4

REPORT INFORMATION
  Report Type: 
  Country: GB (occurrence: GB)
  Receive Date: 20121102
  Receipt Date: 20121102
  Transmission Date: 20130627
  Serious: Yes (Hospitalization, Other)
  Sender: FDA-Public Use
  Company Number: GB-UCBSA-069994

PATIENT
  Age: 60 Year
  Sex: Male

DRUGS (21)
  1. ISOSORBIDE MONONITRATE [Suspect]
  2. ASPIRIN [Suspect]
     Route: 048
  3. ETANERCEPT [Suspect]
     Indication: RHEUMATOID ARTHRITIS
     Route: 058
     Dates: start: 20120420, end: 20120519
  4. NICORANDIL [Suspect]
  5. AMITRIPTYLINE [Concomitant]
     Dosage: NOTCE
     Dates: start: 201207
  6. AMLODIPINE [Concomitant]
     Dosage: 5 MG
  7. ATORVASTATIN [Concomitant]
     Dosage: NOTCE
  8. BISOPROLOL [Concomitant]
     Dosage: 7.5 MG
  9. CANDESARTAN [Concomitant]
     Dosage: 2 MG
  10. FUROSEMIDE [Concomitant]
  11. GABAPENTIN [Concomitant]
     Dates: start: 201207
  12. GTN [Concomitant]
     Dosage: 2 DF, 400 MCG/DOSE 2 PUFFS PM
  13. LISARD INSULIN [Concomitant]
     Dosage: UNITS UNSPECIFIED, SUBCUTANEOUS/TDS
     Route: 058
  14. LIRAGLUTIDE [Concomitant]
     Dosage: 1.2 MG
     Route: 058
  15. MORPHINE SULPHATE [Concomitant]
  16. NIZATIDINE [Concomitant]
  17. ORAMORPH [Concomitant]
     Dosage: (MST) 10MG/5ML 5 ML PM MAX 1 HRLY
  18. PARACETAMOL [Concomitant]
     Dosage: 1 MG PM 4-6 HRLY
  19. PIZOTIFEN [Concomitant]
  20. RIVAROXABAN [Concomitant]
     Dosage: 20 MG
     Dates: start: 201207
  21. SALBUTAMOL [Concomitant]
     Dosage: 100 MCG 2 PUFFS PM

REACTIONS (6)
  - Angina pectoris [Recovered/Resolved]
  - Infusion site cellulitis [Unknown]
  - Tonsillar ulcer [Unknown]
  - Device lead damage [Unknown]
  - Device related infection [Unknown]
  - Drug ineffective [Unknown]
